APPROVED DRUG PRODUCT: FLUVASTATIN SODIUM
Active Ingredient: FLUVASTATIN SODIUM
Strength: EQ 80MG BASE
Dosage Form/Route: TABLET, EXTENDED RELEASE;ORAL
Application: A079011 | Product #001 | TE Code: AB
Applicant: TEVA PHARMACEUTICALS USA
Approved: Jan 27, 2016 | RLD: No | RS: No | Type: RX